FAERS Safety Report 7269037-1 (Version None)
Quarter: 2011Q1

REPORT INFORMATION
  Report Type: 
  Country: None (occurrence: None)
  Receive Date: 20110202
  Receipt Date: 20110124
  Transmission Date: 20110831
  Serious: Yes (Hospitalization)
  Sender: FDA-Public Use
  Company Number: US-BIOGENIDEC-2010BI034407

PATIENT
  Age: 70 Year
  Sex: Female
  Weight: 58 kg

DRUGS (1)
  1. AVONEX [Suspect]
     Indication: MULTIPLE SCLEROSIS
     Route: 030
     Dates: start: 20040502

REACTIONS (4)
  - MEDICAL DEVICE COMPLICATION [None]
  - PNEUMONIA [None]
  - ATROPHY [None]
  - CHRONIC OBSTRUCTIVE PULMONARY DISEASE [None]
